FAERS Safety Report 11577665 (Version 1)
Quarter: 2015Q3

REPORT INFORMATION
  Report Type: Spontaneous
  Country: US (occurrence: US)
  Receive Date: 20150930
  Receipt Date: 20150930
  Transmission Date: 20151125
  Serious: No
  Sender: FDA-Public Use
  Company Number: US-BAYER-2015-427111

PATIENT
  Age: 57 Year
  Sex: Male
  Weight: 93.42 kg

DRUGS (1)
  1. MIRALAX [Suspect]
     Active Substance: POLYETHYLENE GLYCOL 3350
     Indication: COLONOSCOPY
     Dosage: 12 DOSES OF 17 GRAMS OF THE MIRALAX POWDER

REACTIONS (4)
  - Back pain [Recovered/Resolved]
  - Product use issue [None]
  - Diarrhoea [Recovered/Resolved]
  - Off label use [None]
